FAERS Safety Report 20553614 (Version 1)
Quarter: 2022Q1

REPORT INFORMATION
  Report Type: Report from Study
  Country: US (occurrence: None)
  Receive Date: 20220304
  Receipt Date: 20220304
  Transmission Date: 20220423
  Serious: Yes (Other)
  Sender: FDA-Public Use
  Company Number: US-Hikma Pharmaceuticals USA Inc.-US-H14001-22-00559

PATIENT
  Sex: Female

DRUGS (1)
  1. KLOXXADO [Suspect]
     Active Substance: NALOXONE HYDROCHLORIDE
     Indication: Overdose
     Route: 045

REACTIONS (6)
  - Intentional product misuse [Unknown]
  - Drug withdrawal syndrome [Unknown]
  - Hangover [Unknown]
  - Hypervigilance [Unknown]
  - Headache [Unknown]
  - Sluggishness [Unknown]
